FAERS Safety Report 5714787-9 (Version None)
Quarter: 2008Q2

REPORT INFORMATION
  Report Type: 
  Country: None (occurrence: None)
  Receive Date: 20080423
  Receipt Date: 20070316
  Transmission Date: 20081010
  Serious: Yes (Death)
  Sender: FDA-Public Use
  Company Number: GB-ROCHE-487752

PATIENT
  Sex: Female

DRUGS (14)
  1. CAPECITABINE [Suspect]
     Dosage: GIVEN FOR FOURTEEN DAYS EVERY THREE WEEKS.  ACTUAL DAILY DOSE = 3300MG
     Route: 048
     Dates: start: 20040806, end: 20040813
  2. GEMCITABINE [Suspect]
     Dosage: GIVEN ON DAYS 1 AND 8 OF A THREE WEEK CYCLE.  ACTUAL DAILY DOSE = 1900MG
     Route: 042
     Dates: start: 20040806, end: 20040813
  3. CO-AMILOFRUSE [Concomitant]
     Route: 048
     Dates: start: 20040808
  4. CO-AMILOFRUSE [Concomitant]
     Route: 048
     Dates: start: 20040808
  5. ASPIRIN [Concomitant]
     Indication: ANGIOPLASTY
     Route: 048
     Dates: start: 19980101
  6. CREON [Concomitant]
     Route: 048
     Dates: start: 20040401
  7. LANSOPRAZOLE [Concomitant]
     Route: 048
     Dates: start: 20040401
  8. DOMPERIDONE [Concomitant]
     Indication: NAUSEA
     Route: 048
     Dates: start: 20040611
  9. PYRIDOXINE [Concomitant]
     Indication: PALMAR-PLANTAR ERYTHRODYSAESTHESIA SYNDROME
     Route: 048
     Dates: start: 20040611
  10. INFUMORPH [Concomitant]
     Indication: PAIN
     Route: 048
     Dates: start: 20040601
  11. PARACETAMOL [Concomitant]
     Indication: PAIN
     Route: 048
  12. CO-DANTHRUSATE [Concomitant]
     Indication: CONSTIPATION
     Route: 048
     Dates: start: 20040601
  13. CO-DANTHRUSATE [Concomitant]
     Route: 048
     Dates: start: 20040601
  14. GLICLAZIDE [Concomitant]
     Route: 048
     Dates: start: 20040401

REACTIONS (1)
  - DISEASE PROGRESSION [None]
